FAERS Safety Report 4604293-7 (Version None)
Quarter: 2005Q1

REPORT INFORMATION
  Report Type: 
  Country: None (occurrence: None)
  Receive Date: 20050310
  Receipt Date: 20050228
  Transmission Date: 20050727
  Serious: Yes (Other)
  Sender: FDA-Public Use
  Company Number: US-ABBOTT-05P-163-0292841-00

PATIENT
  Age: 4 Year
  Sex: Male

DRUGS (1)
  1. OMNICEF [Suspect]
     Indication: PHARYNGITIS STREPTOCOCCAL
     Dosage: 250/5
     Dates: start: 20050201, end: 20050208

REACTIONS (1)
  - SERUM SICKNESS [None]
